FAERS Safety Report 5605259-0 (Version None)
Quarter: 2008Q1

REPORT INFORMATION
  Report Type: 
  Country: None (occurrence: None)
  Receive Date: 20080129
  Receipt Date: 20080116
  Transmission Date: 20080703
  Serious: Yes (Other)
  Sender: FDA-Public Use
  Company Number: US-PFIZER INC-2008007581

PATIENT
  Sex: Male
  Weight: 86.363 kg

DRUGS (4)
  1. CHANTIX [Suspect]
     Indication: SMOKING CESSATION THERAPY
  2. TRAZODONE HCL [Suspect]
     Indication: SLEEP DISORDER
  3. PROZAC [Concomitant]
  4. XANAX [Concomitant]

REACTIONS (3)
  - ERYTHEMA [None]
  - SWELLING [None]
  - URTICARIA [None]
